FAERS Safety Report 11606549 (Version 3)
Quarter: 2015Q4

REPORT INFORMATION
  Report Type: Spontaneous
  Country: KR (occurrence: KR)
  Receive Date: 20151007
  Receipt Date: 20151012
  Transmission Date: 20160304
  Serious: Yes (Other)
  Sender: FDA-Public Use
  Company Number: PHHY2015KR119742

PATIENT
  Age: 35 Year
  Sex: Female

DRUGS (4)
  1. DOXORUBICIN [Suspect]
     Active Substance: DOXORUBICIN
     Indication: EXOPHTHALMOS
     Dosage: 25 MG/M2
     Route: 042
  2. CISPLATIN. [Suspect]
     Active Substance: CISPLATIN
     Indication: EXOPHTHALMOS
     Dosage: 80 MG/M2
     Route: 041
  3. CISPLATIN. [Suspect]
     Active Substance: CISPLATIN
     Indication: ADENOID CYSTIC CARCINOMA
  4. DOXORUBICIN [Suspect]
     Active Substance: DOXORUBICIN
     Indication: ADENOID CYSTIC CARCINOMA

REACTIONS (8)
  - Mouth ulceration [Recovered/Resolved]
  - Alopecia [Recovered/Resolved]
  - Angiopathy [Recovered/Resolved]
  - Gingivitis [Recovered/Resolved]
  - Asthenia [Recovered/Resolved]
  - Neutropenia [Recovered/Resolved]
  - VIIth nerve paralysis [Recovered/Resolved with Sequelae]
  - Necrosis [Recovered/Resolved]
